FAERS Safety Report 10931399 (Version 1)
Quarter: 2015Q1

REPORT INFORMATION
  Report Type: Spontaneous
  Country: US (occurrence: US)
  Receive Date: 20150319
  Receipt Date: 20150319
  Transmission Date: 20150721
  Serious: No
  Sender: FDA-Public Use
  Company Number: US-SHIONOGI, INC-2014001283

PATIENT
  Sex: Female

DRUGS (3)
  1. LYRICA [Concomitant]
     Active Substance: PREGABALIN
     Indication: FIBROMYALGIA
     Dosage: UNK
     Route: 065
  2. PREDNISONE. [Concomitant]
     Active Substance: PREDNISONE
     Indication: FIBROMYALGIA
     Dosage: 5 MG, DAILY
     Route: 065
  3. OSPHENA [Suspect]
     Active Substance: OSPEMIFENE
     Indication: PRODUCT USED FOR UNKNOWN INDICATION
     Dosage: UNK
     Route: 065
     Dates: start: 20141205, end: 20141219

REACTIONS (2)
  - Muscle spasms [Unknown]
  - Headache [Unknown]

NARRATIVE: CASE EVENT DATE: 20141207
